FAERS Safety Report 5622542-3 (Version None)
Quarter: 2008Q1

REPORT INFORMATION
  Report Type: 
  Country: None (occurrence: None)
  Receive Date: 20080212
  Receipt Date: 20080208
  Transmission Date: 20080703
  Serious: Yes (Hospitalization)
  Sender: FDA-Public Use
  Company Number: US-RB-008688-07

PATIENT
  Sex: Female

DRUGS (3)
  1. SUBUTEX [Suspect]
     Dosage: PRESCRIBED 12MG PER DAY BUT IS NOT TAKING IT AS PRESCRIBED. ACTUAL DOSE BEING TAKEN UNKNOWN.
     Route: 060
     Dates: start: 20071205
  2. SUBOXONE [Suspect]
     Route: 060
     Dates: start: 20071203, end: 20071203
  3. CLARITIN [Concomitant]
     Dosage: UNKNOWN DOSE
     Dates: start: 20071205

REACTIONS (5)
  - DRUG DEPENDENCE [None]
  - MENTAL DISORDER [None]
  - PRURITUS [None]
  - RASH [None]
  - SOMNOLENCE [None]
